FAERS Safety Report 10627379 (Version 2)
Quarter: 2015Q1

REPORT INFORMATION
  Report Type: Report from Study
  Country: AR (occurrence: AR)
  Receive Date: 20141204
  Receipt Date: 20150305
  Transmission Date: 20150720
  Serious: Yes (Hospitalization, Disabling)
  Sender: FDA-Public Use
  Company Number: AR-ROCHE-1501299

PATIENT
  Age: 49 Year
  Sex: Female

DRUGS (1)
  1. ACTEMRA [Suspect]
     Active Substance: TOCILIZUMAB
     Indication: RHEUMATOID ARTHRITIS
     Route: 042
     Dates: start: 20121101

REACTIONS (5)
  - Vomiting [Recovered/Resolved]
  - Pain [Recovered/Resolved]
  - Gastric ulcer [Not Recovered/Not Resolved]
  - Pyrexia [Recovered/Resolved]
  - Nephrolithiasis [Not Recovered/Not Resolved]

NARRATIVE: CASE EVENT DATE: 20141123
